FAERS Safety Report 9197289 (Version 1)
Quarter: 2013Q1

REPORT INFORMATION
  Report Type: Spontaneous
  Country: US (occurrence: None)
  Receive Date: 20120709
  Receipt Date: 20120709
  Transmission Date: 20140127
  Serious: No
  Sender: FDA-Public Use
  Company Number: 2012HGS-003591

PATIENT
  Sex: Female
  Weight: 95.26 kg

DRUGS (11)
  1. BENLYSTA [Suspect]
     Indication: SYSTEMIC LUPUS ERYTHEMATOSUS
     Dosage: 1 IN 28 D
     Route: 041
     Dates: start: 20120224
  2. LIALDA (MESALAZINE) (MESALAZINE) [Concomitant]
  3. PREDNISONE (PREDNISONE) (PREDNISONE) [Concomitant]
  4. PAROXETINE (PAROXETINE) (PAROXETINE) [Concomitant]
  5. LANSOPRAZOLE (LANSOPRAZOLE) (LANSOPRAZOLE) [Concomitant]
  6. METFORMIN (METFORMIN) (METFORMIN) [Concomitant]
  7. PROGESTERONE (PROGESTERONE) (PROGESTERONE) [Concomitant]
  8. LISINOPRIL (LISINOPRIL) (LISINOPRIL) [Concomitant]
  9. FORTEO (TERIPARATIDE) (TERIARATIDE) [Concomitant]
  10. VITAMIN D (ERGOCALCIFEROL) (ERGOCALCIFEROL) [Concomitant]
  11. IRON (FERROUS SUILFATE) (FERROUS SULFATE) [Concomitant]

REACTIONS (2)
  - Fatigue [None]
  - Nail bed infection [None]
